FAERS Safety Report 16270566 (Version 2)
Quarter: 2019Q2

REPORT INFORMATION
  Report Type: Spontaneous
  Country: TH (occurrence: TH)
  Receive Date: 20190503
  Receipt Date: 20190517
  Transmission Date: 20190711
  Serious: Yes (Life-Threatening, Hospitalization, Other)
  Sender: FDA-Public Use
  Company Number: TH-PFIZER INC-2019185478

PATIENT
  Age: 68 Year
  Sex: Male

DRUGS (1)
  1. DOCETAXEL. [Suspect]
     Active Substance: DOCETAXEL
     Indication: LUNG NEOPLASM MALIGNANT
     Dosage: UNK, CYCLIC

REACTIONS (10)
  - Soft tissue infection [Recovered/Resolved]
  - Respiratory failure [Unknown]
  - Diabetic ketoacidosis [Unknown]
  - Pseudomonas infection [Recovered/Resolved]
  - Multiple organ dysfunction syndrome [Unknown]
  - Hyperglycaemic hyperosmolar nonketotic syndrome [Unknown]
  - Necrotising fasciitis [Recovered/Resolved]
  - Acute kidney injury [Unknown]
  - Septic shock [Unknown]
  - Disseminated intravascular coagulation [Unknown]
